FAERS Safety Report 7161737-7 (Version None)
Quarter: 2010Q4

REPORT INFORMATION
  Report Type: 
  Country: None (occurrence: None)
  Receive Date: 20101215
  Receipt Date: 20101202
  Transmission Date: 20110411
  Serious: Yes (Hospitalization)
  Sender: FDA-Public Use
  Company Number: NO-ELI_LILLY_AND_COMPANY-NO201009003484

PATIENT
  Sex: Male

DRUGS (3)
  1. ZYPADHERA [Suspect]
     Indication: PSYCHOTIC DISORDER
     Dosage: 405 MG, EVERY 2 WEEKS
     Dates: start: 20100106
  2. ZYPADHERA [Suspect]
     Dosage: 300 MG, WEEKLY (1/W)
     Dates: start: 20100811
  3. ZYPADHERA [Suspect]
     Dosage: 210 MG, EVERY 2WEEKS

REACTIONS (2)
  - DRUG LEVEL INCREASED [None]
  - OVERDOSE [None]
